FAERS Safety Report 5512222-7 (Version None)
Quarter: 2007Q4

REPORT INFORMATION
  Report Type: 
  Country: None (occurrence: None)
  Receive Date: 20071112
  Receipt Date: 20071105
  Transmission Date: 20080405
  Serious: Yes (Hospitalization)
  Sender: FDA-Public Use
  Company Number: PHBS2007BR18620

PATIENT
  Age: 68 Year
  Sex: Female

DRUGS (3)
  1. FEMARA [Suspect]
     Indication: BREAST CANCER
     Dosage: 2.5 MG/D
     Route: 048
     Dates: start: 20071001
  2. RIVOTRIL [Concomitant]
     Route: 065
  3. ALGINAC [Concomitant]
     Indication: PAIN
     Route: 065

REACTIONS (1)
  - BIPOLAR DISORDER [None]
